FAERS Safety Report 4876181-2 (Version None)
Quarter: 2006Q1

REPORT INFORMATION
  Report Type: 
  Country: None (occurrence: None)
  Receive Date: 20060110
  Receipt Date: 20060104
  Transmission Date: 20060701
  Serious: Yes (Other)
  Sender: FDA-Public Use
  Company Number: 2006UW00196

PATIENT
  Age: 32 Year
  Sex: Male
  Weight: 60.8 kg

DRUGS (4)
  1. SEROQUEL [Suspect]
     Indication: SCHIZOPHRENIA
     Route: 048
  2. SEROQUEL [Suspect]
     Indication: BIPOLAR DISORDER
     Route: 048
  3. DEPAKOTE [Concomitant]
     Route: 048
  4. ATIVAN [Concomitant]
     Route: 048

REACTIONS (6)
  - ANAEMIA [None]
  - DIARRHOEA [None]
  - ERYTHEMA [None]
  - HAEMATEMESIS [None]
  - HEPATOCELLULAR DAMAGE [None]
  - VOMITING [None]
